FAERS Safety Report 7396312-2 (Version None)
Quarter: 2011Q1

REPORT INFORMATION
  Report Type: 
  Country: None (occurrence: None)
  Receive Date: 20110331
  Receipt Date: 20110331
  Transmission Date: 20110831
  Serious: Yes (Disabling)
  Sender: FDA-Public Use
  Company Number: None

PATIENT
  Age: 56 Year
  Sex: Female
  Weight: 90.7194 kg

DRUGS (2)
  1. LEVAQUIN [Suspect]
     Dosage: 500 MG 1X/DAY 7 DAYS
     Dates: start: 20101020, end: 20101026
  2. LEVAQUIN [Suspect]
     Indication: SINUSITIS
     Dosage: 500 MG 1X/DAY 2 DAYS
     Dates: start: 20100929, end: 20101019

REACTIONS (4)
  - JOINT STIFFNESS [None]
  - SKIN EXFOLIATION [None]
  - MUSCLE TIGHTNESS [None]
  - TENDON DISORDER [None]
